FAERS Safety Report 5924006-6 (Version None)
Quarter: 2008Q4

REPORT INFORMATION
  Report Type: 
  Country: None (occurrence: None)
  Receive Date: 20081020
  Receipt Date: 20081010
  Transmission Date: 20090506
  Serious: Yes (Other)
  Sender: FDA-Public Use
  Company Number: PHHY2008BR24486

PATIENT
  Age: 30 Year
  Sex: Female

DRUGS (1)
  1. CODATEN [Suspect]
     Dosage: UNK
     Route: 048

REACTIONS (9)
  - ARTHRALGIA [None]
  - BACK PAIN [None]
  - BLOOD PRESSURE FLUCTUATION [None]
  - BODY TEMPERATURE DECREASED [None]
  - HEART RATE ABNORMAL [None]
  - NECK PAIN [None]
  - PAIN IN EXTREMITY [None]
  - PRESYNCOPE [None]
  - TREMOR [None]
